FAERS Safety Report 4627139-X (Version None)
Quarter: 2005Q2

REPORT INFORMATION
  Report Type: 
  Country: None (occurrence: None)
  Receive Date: 20050405
  Receipt Date: 20050329
  Transmission Date: 20051028
  Serious: Yes (Death, Life-Threatening)
  Sender: FDA-Public Use
  Company Number: US-GLAXOSMITHKLINE-A0551771A

PATIENT
  Age: 82 Year
  Sex: Male

DRUGS (8)
  1. PAXIL CR [Suspect]
     Indication: DEPRESSION
     Dosage: 25MG PER DAY
     Route: 048
     Dates: start: 20050209
  2. AMBIEN [Concomitant]
  3. XANAX [Concomitant]
  4. DESYREL [Concomitant]
  5. ATENOLOL [Concomitant]
  6. LISINOPRIL [Concomitant]
  7. LIPITOR [Concomitant]
  8. ZOCOR [Concomitant]

REACTIONS (2)
  - COMPLETED SUICIDE [None]
  - CONSTIPATION [None]
